FAERS Safety Report 6977090-5 (Version None)
Quarter: 2010Q3

REPORT INFORMATION
  Report Type: 
  Country: None (occurrence: None)
  Receive Date: 20100910
  Receipt Date: 20100902
  Transmission Date: 20110219
  Serious: Yes (Hospitalization)
  Sender: FDA-Public Use
  Company Number: JP-MERCK-1008USA01582

PATIENT
  Age: 68 Year
  Sex: Male
  Weight: 54 kg

DRUGS (4)
  1. STROMECTOL [Suspect]
     Indication: ACARODERMATITIS
     Route: 048
     Dates: start: 20100722, end: 20100722
  2. STROMECTOL [Suspect]
     Route: 048
     Dates: start: 20100729, end: 20100729
  3. ALLELOCK [Suspect]
     Indication: PRURITUS
     Route: 048
     Dates: start: 20100701, end: 20100808
  4. EURAX [Concomitant]
     Indication: ACARODERMATITIS
     Route: 061
     Dates: start: 20100722, end: 20100808

REACTIONS (4)
  - ALTERED STATE OF CONSCIOUSNESS [None]
  - DEHYDRATION [None]
  - PNEUMONIA [None]
  - STEVENS-JOHNSON SYNDROME [None]
